FAERS Safety Report 9174790 (Version 1)
Quarter: 2013Q1

REPORT INFORMATION
  Report Type: Spontaneous
  Country: GR (occurrence: None)
  Receive Date: 20130318
  Receipt Date: 20130318
  Transmission Date: 20140127
  Serious: Yes (Other)
  Sender: FDA-Public Use
  Company Number: 7199393

PATIENT
  Age: 70 Year
  Sex: Female

DRUGS (2)
  1. EUTHYROX (LEVOTHYROXINE SODIUM)(TABLET)(LEVOTHYROXINE SODIUM) [Suspect]
     Indication: SURGERY
     Dosage: 1 DF, 1 IN 1 D
     Route: 048
  2. EUTHYROX (LEVOTHYROXINE SODIUM)(TABLET)(LEVOTHYROXINE SODIUM) [Suspect]
     Indication: GOITRE
     Dosage: 1 DF, 1 IN 1 D
     Route: 048

REACTIONS (1)
  - Drug ineffective [None]
